FAERS Safety Report 4604478-X (Version None)
Quarter: 2005Q1

REPORT INFORMATION
  Report Type: 
  Country: None (occurrence: None)
  Receive Date: 20050217
  Receipt Date: 20041201
  Transmission Date: 20050727
  Serious: No
  Sender: FDA-Public Use
  Company Number: S04-USA-07586-01

PATIENT
  Age: 82 Year
  Sex: Female

DRUGS (10)
  1. NAMENDA [Suspect]
     Indication: AMNESIA
     Dosage: 5 MG QD PO
     Route: 048
     Dates: start: 20041001, end: 20040101
  2. NAMENDA [Suspect]
     Indication: AMNESIA
     Dosage: 5 MG BID PO
     Route: 048
     Dates: start: 20040101, end: 20040101
  3. NAMENDA [Suspect]
     Indication: AMNESIA
     Dosage: 15 MG QD PO
     Route: 048
     Dates: start: 20040101, end: 20040101
  4. NAMENDA [Suspect]
     Indication: AMNESIA
     Dosage: 10 MG BID PO
     Route: 048
     Dates: start: 20040101
  5. SYNTHROID [Concomitant]
  6. DIOVAN [Concomitant]
  7. TOPROL-XL [Concomitant]
  8. HYDROCHLOROTHIAZIDE [Concomitant]
  9. CRESTOR [Concomitant]
  10. PLAVIX [Concomitant]

REACTIONS (1)
  - ALOPECIA [None]
